FAERS Safety Report 12532686 (Version 1)
Quarter: 2016Q3

REPORT INFORMATION
  Report Type: Spontaneous
  Country: US (occurrence: US)
  Receive Date: 20160706
  Receipt Date: 20160706
  Transmission Date: 20161109
  Serious: No
  Sender: FDA-Public Use
  Company Number: US-ACTELION-A-NJ2016-138368

PATIENT
  Age: 28 Year
  Sex: Female

DRUGS (2)
  1. VELETRI [Suspect]
     Active Substance: EPOPROSTENOL
     Indication: PULMONARY ARTERIAL HYPERTENSION
     Dosage: 15 NG/KG, PER MIN
     Route: 042
     Dates: start: 20150309
  2. WARFARIN [Concomitant]
     Active Substance: WARFARIN

REACTIONS (4)
  - Device related infection [Unknown]
  - Skin sensitisation [Unknown]
  - Skin discolouration [Unknown]
  - Complication associated with device [Unknown]
